FAERS Safety Report 17419224 (Version 2)
Quarter: 2020Q1

REPORT INFORMATION
  Report Type: Spontaneous
  Country: US (occurrence: US)
  Receive Date: 20200214
  Receipt Date: 20200218
  Transmission Date: 20200409
  Serious: Yes (Hospitalization, Other)
  Sender: FDA-Public Use
  Company Number: US-TEVA-2020-US-1182869

PATIENT
  Sex: Female

DRUGS (4)
  1. HALDOL [Suspect]
     Active Substance: HALOPERIDOL
     Indication: CHOREA
     Route: 042
  2. AUSTEDO [Suspect]
     Active Substance: DEUTETRABENAZINE
     Dosage: 36 MILLIGRAM DAILY;
     Route: 065
  3. HALDOL [Suspect]
     Active Substance: HALOPERIDOL
     Dosage: 4 MILLIGRAM DAILY; INCREASED HER TO 2 EVERY 6 HOURS.
     Route: 042
  4. AUSTEDO [Suspect]
     Active Substance: DEUTETRABENAZINE
     Indication: HUNTINGTON^S DISEASE
     Dosage: NEW TITRATING PATIENT
     Route: 065
     Dates: start: 20190819

REACTIONS (13)
  - Hepatic enzyme abnormal [Unknown]
  - Alanine aminotransferase increased [Unknown]
  - Blood urea increased [Recovered/Resolved]
  - Speech disorder [Unknown]
  - Dysphagia [Not Recovered/Not Resolved]
  - Aspartate aminotransferase increased [Recovering/Resolving]
  - Muscle spasms [Recovering/Resolving]
  - Blood creatinine increased [Recovered/Resolved]
  - Dehydration [Recovered/Resolved]
  - Impaired gastric emptying [Unknown]
  - Vomiting [Unknown]
  - Gastrointestinal hypomotility [Unknown]
  - Muscle atrophy [Unknown]
